FAERS Safety Report 8574845 (Version 4)
Quarter: 2013Q3

REPORT INFORMATION
  Report Type: Report from Study
  Country: US (occurrence: US)
  Receive Date: 20120523
  Receipt Date: 20130913
  Transmission Date: 20140515
  Serious: Yes (Hospitalization, Other)
  Sender: FDA-Public Use
  Company Number: US-BRISTOL-MYERS SQUIBB COMPANY-16506925

PATIENT
  Age: 70 Year
  Sex: Female

DRUGS (5)
  1. NIVOLUMAB [Suspect]
     Indication: MALIGNANT MELANOMA
     Dosage: INDUCTION DOSE AT WK.15
     Route: 042
     Dates: start: 20120221
  2. IPILIMUMAB [Suspect]
     Indication: MALIGNANT MELANOMA
     Route: 042
     Dates: start: 20120221
  3. CARDIZEM LA [Concomitant]
     Indication: HYPERTENSION
     Dates: start: 2004
  4. TOPROL [Concomitant]
     Indication: HYPERTENSION
     Dates: start: 2004
  5. FOSINOPRIL SODIUM [Concomitant]
     Indication: HYPERTENSION
     Dates: start: 2004

REACTIONS (3)
  - Lipase increased [Recovered/Resolved]
  - Amylase increased [Recovered/Resolved]
  - Hypertension [Recovered/Resolved]
